FAERS Safety Report 8534014-7 (Version None)
Quarter: 2012Q3

REPORT INFORMATION
  Report Type: 
  Country: None (occurrence: None)
  Receive Date: 20120724
  Receipt Date: 20120709
  Transmission Date: 20120928
  Serious: Yes (Death, Hospitalization)
  Sender: FDA-Public Use
  Company Number: NL-WATSON-2012-12050

PATIENT
  Age: 75 Year
  Sex: Female

DRUGS (4)
  1. PAMIDRONATE DISODIUM [Suspect]
     Indication: OSTEOPOROSIS
     Dosage: 60 MG, EVERY 3 MONTHS
     Route: 042
  2. AZATHIOPRINE [Suspect]
     Indication: AUTOIMMUNE HEPATITIS
     Route: 065
  3. PREDNISONE TAB [Suspect]
     Indication: AUTOIMMUNE HEPATITIS
     Route: 065
  4. ZOLEDRONIC ACID [Suspect]
     Indication: OSTEOPOROSIS
     Dosage: 5 MG, YEARLY
     Route: 042

REACTIONS (6)
  - CANDIDIASIS [None]
  - OSTEONECROSIS OF JAW [None]
  - PSEUDOMONAS INFECTION [None]
  - PNEUMONIA FUNGAL [None]
  - RESPIRATORY FAILURE [None]
  - LIVER FUNCTION TEST ABNORMAL [None]
